FAERS Safety Report 7440590-8 (Version None)
Quarter: 2011Q2

REPORT INFORMATION
  Report Type: 
  Country: None (occurrence: None)
  Receive Date: 20110427
  Receipt Date: 20110420
  Transmission Date: 20111010
  Serious: Yes (Death)
  Sender: FDA-Public Use
  Company Number: B0710197A

PATIENT
  Sex: Male

DRUGS (6)
  1. MARAVIROC [Suspect]
     Indication: HIV INFECTION
     Dosage: 600MG TWICE PER DAY
     Route: 048
     Dates: start: 20071031, end: 20110303
  2. LEVOTIROXINA [Concomitant]
     Indication: HYPOTHYROIDISM
     Route: 048
     Dates: start: 20101101, end: 20110303
  3. CIPROFLOXACIN [Concomitant]
     Dates: start: 20110215, end: 20110303
  4. RISPERIDONE [Concomitant]
     Dates: start: 20070101, end: 20110303
  5. PROPRANOLOL [Concomitant]
     Indication: HEPATIC CIRRHOSIS
     Route: 048
     Dates: start: 20070101, end: 20110303
  6. NITROGLYCERIN [Concomitant]
     Indication: HEPATIC CIRRHOSIS
     Route: 062
     Dates: start: 20070101, end: 20110303

REACTIONS (1)
  - EPILEPSY [None]
